FAERS Safety Report 16710305 (Version 1)
Quarter: 2019Q3

REPORT INFORMATION
  Report Type: Spontaneous
  Country: CN (occurrence: CN)
  Receive Date: 20190816
  Receipt Date: 20190816
  Transmission Date: 20191004
  Serious: Yes (Hospitalization, Other)
  Sender: FDA-Public Use
  Company Number: CN-BRACCO-2019CN04044

PATIENT
  Age: 53 Year
  Sex: Male

DRUGS (1)
  1. SONOVUE [Suspect]
     Active Substance: SULFUR HEXAFLUORIDE
     Indication: ULTRASOUND SCAN
     Dosage: 1.4 ML, SINGLE
     Route: 042
     Dates: start: 20190731, end: 20190731

REACTIONS (5)
  - Blood glucose decreased [Recovering/Resolving]
  - Hypotension [Recovering/Resolving]
  - Blood pressure immeasurable [Recovering/Resolving]
  - Chest discomfort [Recovering/Resolving]
  - Palpitations [Recovering/Resolving]

NARRATIVE: CASE EVENT DATE: 20190731
